FAERS Safety Report 19424332 (Version 2)
Quarter: 2021Q3

REPORT INFORMATION
  Report Type: Spontaneous
  Country: US (occurrence: US)
  Receive Date: 20210616
  Receipt Date: 20210914
  Transmission Date: 20211014
  Serious: No
  Sender: FDA-Public Use
  Company Number: US-SK LIFE SCIENCE, INC.-SKPVG-2021-000540

PATIENT

DRUGS (7)
  1. XCOPRI [Suspect]
     Active Substance: CENOBAMATE
     Dosage: 50 MILLIGRAM, QD
     Route: 048
     Dates: start: 20210310
  2. XCOPRI [Suspect]
     Active Substance: CENOBAMATE
     Dosage: HALF OF 50 MG, QD
     Route: 048
  3. XCOPRI [Suspect]
     Active Substance: CENOBAMATE
     Indication: SEIZURE
     Dosage: 12.5 MILLIGRAM
     Route: 048
     Dates: start: 202103
  4. ZONISAMIDE. [Suspect]
     Active Substance: ZONISAMIDE
     Indication: PRODUCT USED FOR UNKNOWN INDICATION
     Dosage: 300 MILLIGRAM, BID
     Route: 065
  5. XCOPRI [Suspect]
     Active Substance: CENOBAMATE
     Dosage: UNK
  6. LAMOTRIGINE. [Suspect]
     Active Substance: LAMOTRIGINE
     Indication: PRODUCT USED FOR UNKNOWN INDICATION
     Dosage: 400 MILLIGRAM, BID
     Route: 065
  7. XCOPRI [Suspect]
     Active Substance: CENOBAMATE
     Dosage: 100 MILLIGRAM, QD
     Route: 048
     Dates: start: 202106

REACTIONS (11)
  - Fall [Recovered/Resolved]
  - Face injury [Unknown]
  - Eye contusion [Unknown]
  - Skin injury [Not Recovered/Not Resolved]
  - Dizziness [Recovered/Resolved]
  - Contusion [Unknown]
  - Head injury [Unknown]
  - Wrong technique in product usage process [Recovered/Resolved]
  - Speech disorder [Recovering/Resolving]
  - Abnormal behaviour [Recovering/Resolving]
  - Gait disturbance [Recovered/Resolved]

NARRATIVE: CASE EVENT DATE: 20210322
